FAERS Safety Report 19403004 (Version 2)
Quarter: 2021Q2

REPORT INFORMATION
  Report Type: Spontaneous
  Country: BR (occurrence: BR)
  Receive Date: 20210610
  Receipt Date: 20210627
  Transmission Date: 20210717
  Serious: Yes (Other)
  Sender: FDA-Public Use
  Company Number: NVSC2021BR128720

PATIENT
  Age: 58 Year
  Sex: Female
  Weight: 86.8 kg

DRUGS (4)
  1. ESTRADOT [Suspect]
     Active Substance: ESTRADIOL
     Dosage: 2 DF (ONE PATCH OF 100 MCG ON MONDAY AND ONE PATCH OF 100 MCG ON THURSDAY)
     Route: 062
     Dates: start: 2017, end: 202105
  2. BLACK COHOSH [Concomitant]
     Active Substance: BLACK COHOSH
     Indication: MENOPAUSE
     Dosage: 1 DF, QD
     Route: 048
     Dates: start: 202105
  3. ESTRADOT [Suspect]
     Active Substance: ESTRADIOL
     Indication: MENOPAUSE
     Dosage: 1 DF (50 MCG, ONE PATCH ON MONDAY AND ONE PATCH ON THURSDAY)
     Route: 062
     Dates: start: 201503, end: 2016
  4. ESTRADOT [Suspect]
     Active Substance: ESTRADIOL
     Dosage: 2 DF (ONE PATCH OF 50 MCGBON MONDAY AND ONE OF 100 MCG ON THURSDAY)
     Route: 062
     Dates: start: 2016, end: 2017

REACTIONS (2)
  - Product availability issue [Unknown]
  - Weight increased [Recovering/Resolving]

NARRATIVE: CASE EVENT DATE: 202003
